FAERS Safety Report 22272683 (Version 1)
Quarter: 2023Q2

REPORT INFORMATION
  Report Type: Spontaneous
  Country: US (occurrence: US)
  Receive Date: 20230502
  Receipt Date: 20230502
  Transmission Date: 20230721
  Serious: Yes (Other)
  Sender: FDA-Public Use
  Company Number: US-AMGEN-USASP2023071327

PATIENT
  Age: 73 Year
  Sex: Female

DRUGS (1)
  1. REPATHA [Suspect]
     Active Substance: EVOLOCUMAB
     Indication: Blood cholesterol increased
     Dosage: 140 MILLIGRAM, Q2WK
     Route: 058
     Dates: start: 202210

REACTIONS (4)
  - Spinal operation [Unknown]
  - Diarrhoea [Unknown]
  - Incorrect disposal of product [Unknown]
  - Device use error [Unknown]

NARRATIVE: CASE EVENT DATE: 20230419
